FAERS Safety Report 15364017 (Version 1)
Quarter: 2018Q3

REPORT INFORMATION
  Report Type: Spontaneous
  Country: US (occurrence: US)
  Receive Date: 20180908
  Receipt Date: 20180908
  Transmission Date: 20181010
  Serious: No
  Sender: FDA-Public Use
  Company Number: US-JNJFOC-20180802344

PATIENT
  Sex: Female

DRUGS (2)
  1. IMODIUM A?D [Suspect]
     Active Substance: LOPERAMIDE HYDROCHLORIDE
     Indication: DIARRHOEA
     Dosage: UNSPECIFIED AMOUNT ? FILLED CAP ONE TIME
     Route: 048
     Dates: start: 20180801, end: 20180801
  2. IMODIUM A?D [Suspect]
     Active Substance: LOPERAMIDE HYDROCHLORIDE
     Route: 048

REACTIONS (2)
  - Product lot number issue [Unknown]
  - Incorrect dose administered [Unknown]
